FAERS Safety Report 7347370 (Version 3)
Quarter: 2013Q2

REPORT INFORMATION
  Report Type: Spontaneous
  Country: US (occurrence: US)
  Receive Date: 20100407
  Receipt Date: 20130528
  Transmission Date: 20140414
  Serious: Yes (Hospitalization, Other)
  Sender: FDA-Public Use
  Company Number: US-BAYER-201018239NA

PATIENT
  Age: 14 Year
  Sex: Female
  Weight: 68.03 kg

DRUGS (13)
  1. YAZ [Suspect]
     Indication: CONTRACEPTION
     Dosage: UNK UNK, UNK
     Route: 048
     Dates: start: 2005, end: 200803
  2. YAZ [Suspect]
     Indication: ACNE
  3. YAZ [Suspect]
     Indication: PREMENSTRUAL DYSPHORIC DISORDER
  4. YAZ [Suspect]
     Indication: PREMENSTRUAL SYNDROME
  5. YASMIN [Suspect]
  6. NSAID^S [Concomitant]
     Dosage: UNK
     Dates: start: 2002
  7. SULFAMETHOXAZOLE/TRIMETHOPRIM [Concomitant]
     Indication: INFECTION
     Dosage: 800 MG, BID
     Dates: start: 20080307, end: 20080312
  8. LITHIUM CARBON [Concomitant]
  9. HYDROCODONE W/APAP [Concomitant]
     Indication: INFLAMMATION
     Dosage: 5 MG, UNK
     Dates: start: 20080321, end: 20080321
  10. HYDROCODONE W/APAP [Concomitant]
     Indication: INFLAMMATION
     Dosage: 5 MG, PRN
     Dates: start: 20080326, end: 20080326
  11. D.S.S. [Concomitant]
     Indication: CONSTIPATION
     Dosage: UNK UNK, PRN
     Dates: start: 20080326
  12. DICYCLOMINE [Concomitant]
  13. LITHIUM [Concomitant]
     Indication: BIPOLAR DISORDER

REACTIONS (10)
  - Cholelithiasis [Unknown]
  - Abdominal pain upper [None]
  - Thrombosis [None]
  - Cholecystitis chronic [None]
  - Abdominal pain [None]
  - Muscle spasms [None]
  - Nausea [None]
  - Vomiting [None]
  - Haemorrhage [None]
  - Blood pressure decreased [None]
